FAERS Safety Report 13660710 (Version 2)
Quarter: 2017Q3

REPORT INFORMATION
  Report Type: Spontaneous
  Country: KR (occurrence: KR)
  Receive Date: 20170616
  Receipt Date: 20170802
  Transmission Date: 20171127
  Serious: Yes (Other)
  Sender: FDA-Public Use
  Company Number: KR-009507513-1512KOR013904

PATIENT
  Age: 66 Year
  Sex: Male
  Weight: 79.9 kg

DRUGS (17)
  1. MABTHERA [Concomitant]
     Active Substance: RITUXIMAB
     Indication: DIFFUSE LARGE B-CELL LYMPHOMA
     Dosage: 746 MG, ONCE
     Dates: start: 20151217, end: 20151217
  2. VINCRISTINE SULFATE. [Concomitant]
     Active Substance: VINCRISTINE SULFATE
     Indication: DIFFUSE LARGE B-CELL LYMPHOMA
     Dosage: 2 MG, ONCE
     Route: 042
     Dates: start: 20151217, end: 20151217
  3. LAMINA G [Concomitant]
     Active Substance: SODIUM ALGINATE
     Indication: ABDOMINAL PAIN UPPER
     Dosage: 1 PK, TID
     Route: 048
     Dates: start: 20151211
  4. HARNAL [Concomitant]
     Active Substance: TAMSULOSIN HYDROCHLORIDE
     Indication: BENIGN PROSTATIC HYPERPLASIA
     Dosage: 0.2 MG, QD
     Route: 048
     Dates: start: 2015
  5. SEPTRIN [Concomitant]
     Active Substance: SULFAMETHOXAZOLE\TRIMETHOPRIM
     Indication: INFECTION PROPHYLAXIS
     Dosage: 1 DF, BID
     Route: 048
     Dates: start: 20151217
  6. DOXORUBICIN [Concomitant]
     Active Substance: DOXORUBICIN
     Indication: DIFFUSE LARGE B-CELL LYMPHOMA
     Dosage: 99 MG, ONCE
     Route: 042
     Dates: start: 20151217, end: 20151217
  7. SOLONDO [Concomitant]
     Active Substance: PREDNISOLONE
     Indication: PROPHYLAXIS OF NAUSEA AND VOMITING
     Dosage: 40 MG, QD
     Route: 048
     Dates: start: 20151217, end: 20151221
  8. ALOXI [Concomitant]
     Active Substance: PALONOSETRON HYDROCHLORIDE
     Indication: PROPHYLAXIS OF NAUSEA AND VOMITING
     Dosage: 0.25 MG, ONCE
     Route: 042
     Dates: start: 20151217, end: 20151217
  9. VESICARE [Concomitant]
     Active Substance: SOLIFENACIN SUCCINATE
     Indication: BENIGN PROSTATIC HYPERPLASIA
     Dosage: 5 MG, QD
     Route: 048
     Dates: start: 2015
  10. FINASTERIDE. [Concomitant]
     Active Substance: FINASTERIDE
     Indication: BENIGN PROSTATIC HYPERPLASIA
     Dosage: 5 MG, QD
     Route: 048
  11. LANSTON [Concomitant]
     Active Substance: LANSOPRAZOLE
     Indication: ABDOMINAL PAIN UPPER
     Dosage: 30 MG, TID
     Route: 048
     Dates: start: 20151211, end: 20151225
  12. ENDOXAN [Concomitant]
     Active Substance: CYCLOPHOSPHAMIDE
     Indication: DIFFUSE LARGE B-CELL LYMPHOMA
     Dosage: 1492 MG, ONCE
     Route: 042
     Dates: start: 20151217, end: 20151217
  13. SOLONDO [Concomitant]
     Active Substance: PREDNISOLONE
     Dosage: 30 MG, BID
     Route: 048
     Dates: start: 20151217, end: 20151221
  14. RESPILENE (ZIPEPROL HYDROCHLORIDE) [Concomitant]
     Indication: UPPER RESPIRATORY TRACT INFECTION
     Dosage: 15 ML, TID
     Route: 048
     Dates: start: 20151214
  15. EMEND (FOSAPREPITANT DIMEGLUMINE) [Suspect]
     Active Substance: FOSAPREPITANT DIMEGLUMINE
     Indication: PROPHYLAXIS OF NAUSEA AND VOMITING
     Dosage: 150 MG, ONCE
     Route: 042
     Dates: start: 20151217, end: 20151217
  16. MUTERAN [Concomitant]
     Active Substance: ACETYLCYSTEINE
     Indication: UPPER RESPIRATORY TRACT INFECTION
     Dosage: 200 MG, TID
     Route: 048
     Dates: start: 20151209
  17. CRAVIT [Concomitant]
     Active Substance: LEVOFLOXACIN
     Indication: INFECTION PROPHYLAXIS
     Dosage: 500 MG, QD
     Route: 048
     Dates: start: 20151217

REACTIONS (3)
  - Oesophageal candidiasis [Recovered/Resolved]
  - Neutropenia [Recovered/Resolved]
  - Oropharyngeal pain [Recovered/Resolved]

NARRATIVE: CASE EVENT DATE: 20151222
